FAERS Safety Report 14820110 (Version 3)
Quarter: 2018Q2

REPORT INFORMATION
  Report Type: Spontaneous
  Country: IR (occurrence: IR)
  Receive Date: 20180427
  Receipt Date: 20180525
  Transmission Date: 20180711
  Serious: Yes (Other)
  Sender: FDA-Public Use
  Company Number: IR-JNJFOC-20180426126

PATIENT
  Age: 0 Year
  Sex: Male
  Weight: 3.6 kg

DRUGS (5)
  1. REMICADE [Suspect]
     Active Substance: INFLIXIMAB
     Indication: COLITIS ULCERATIVE
     Dosage: MOTHER^S DOSING
     Route: 064
     Dates: start: 2013, end: 20171229
  2. MESALAZINE [Concomitant]
     Active Substance: MESALAMINE
     Route: 064
  3. PREDNISOLONE. [Concomitant]
     Active Substance: PREDNISOLONE
     Route: 064
  4. AZATHIOPRINE. [Concomitant]
     Active Substance: AZATHIOPRINE
     Route: 064
  5. REMICADE [Suspect]
     Active Substance: INFLIXIMAB
     Indication: COLITIS ULCERATIVE
     Dosage: MOTHER^S DOSING
     Route: 064
     Dates: start: 2012, end: 2013

REACTIONS (3)
  - Foetal exposure during pregnancy [Recovered/Resolved]
  - Exposure via breast milk [Unknown]
  - Drug level increased [Recovering/Resolving]

NARRATIVE: CASE EVENT DATE: 2017
